FAERS Safety Report 18037937 (Version 1)
Quarter: 2020Q3

REPORT INFORMATION
  Report Type: Report from Study
  Country: KR (occurrence: KR)
  Receive Date: 20200717
  Receipt Date: 20200717
  Transmission Date: 20201103
  Serious: Yes (Death, Other)
  Sender: FDA-Public Use
  Company Number: KR-ASTELLAS-2017US035451

PATIENT
  Age: 51 Year
  Sex: Male

DRUGS (23)
  1. MAGNES [Concomitant]
     Indication: HYPOMAGNESAEMIA
     Dosage: UNK UNK, UNKNOWN FREQ.
     Route: 048
     Dates: start: 20170313
  2. HYALUMINI [Concomitant]
     Indication: CONJUNCTIVITIS
     Dosage: UNK UNK, UNKNOWN FREQ.
     Route: 047
     Dates: start: 20170618
  3. RABIET [Concomitant]
     Indication: GASTROINTESTINAL DISORDER
     Dosage: UNK UNK, UNKNOWN FREQ.
     Route: 048
     Dates: start: 20161028
  4. CORTISOLU [Concomitant]
     Active Substance: HYDROCORTISONE SODIUM SUCCINATE
     Dosage: UNK UNK, UNKNOWN FREQ.
     Route: 042
     Dates: start: 20170807, end: 20170807
  5. CORTISOLU [Concomitant]
     Active Substance: HYDROCORTISONE SODIUM SUCCINATE
     Dosage: UNK UNK, UNKNOWN FREQ.
     Route: 042
     Dates: start: 20170814, end: 20170814
  6. ASP2215 [Suspect]
     Active Substance: GILTERITINIB
     Route: 048
     Dates: start: 20170819, end: 20170927
  7. URSA [Concomitant]
     Active Substance: URSODIOL
     Indication: ALANINE AMINOTRANSFERASE INCREASED
     Dosage: UNK UNK, UNKNOWN FREQ.
     Route: 048
     Dates: start: 20170214
  8. SUPRAX [Concomitant]
     Active Substance: CEFIXIME
     Indication: BACTERIAL INFECTION
     Dosage: UNK UNK, UNKNOWN FREQ.
     Route: 048
     Dates: start: 20170725, end: 20170731
  9. CORTISOLU [Concomitant]
     Active Substance: HYDROCORTISONE SODIUM SUCCINATE
     Indication: PREMEDICATION
     Dosage: UNK UNK, UNKNOWN FREQ.
     Route: 042
     Dates: start: 20170801, end: 20170801
  10. ASP2215 [Suspect]
     Active Substance: GILTERITINIB
     Indication: ACUTE MYELOID LEUKAEMIA
     Route: 048
     Dates: start: 20170622, end: 20170818
  11. LEVOXACIN [Concomitant]
     Active Substance: LEVOFLOXACIN
     Indication: CONJUNCTIVITIS
     Dosage: UNK UNK, UNKNOWN FREQ.
     Route: 047
     Dates: start: 20170619
  12. CRAVIT [Concomitant]
     Active Substance: LEVOFLOXACIN
     Indication: STOMATITIS
     Dosage: UNK UNK, UNKNOWN FREQ.
     Route: 048
     Dates: start: 20170801
  13. LIDOCAINE. [Concomitant]
     Active Substance: LIDOCAINE
     Indication: BIOPSY BONE MARROW
     Dosage: UNK UNK, UNKNOWN FREQ.
     Route: 058
     Dates: start: 20170818, end: 20170818
  14. FOLSAN [Concomitant]
     Active Substance: FOLIC ACID
     Indication: ANAEMIA
     Dosage: UNK UNK, UNKNOWN FREQ.
     Route: 048
     Dates: start: 20170313
  15. LYRICA [Concomitant]
     Active Substance: PREGABALIN
     Indication: MUSCULOSKELETAL PAIN
     Dosage: UNK UNK, UNKNOWN FREQ.
     Route: 048
     Dates: start: 20161112
  16. OCUMETHOLONE [Concomitant]
     Indication: CONJUNCTIVITIS
     Dosage: UNK UNK, UNKNOWN FREQ.
     Route: 047
     Dates: start: 20170619
  17. CORTISOLU [Concomitant]
     Active Substance: HYDROCORTISONE SODIUM SUCCINATE
     Dosage: UNK UNK, UNKNOWN FREQ.
     Route: 042
     Dates: start: 20170811, end: 20170811
  18. DIABEX [Concomitant]
     Active Substance: METFORMIN HYDROCHLORIDE
     Indication: DIABETES MELLITUS
     Dosage: UNK UNK, UNKNOWN FREQ.
     Route: 048
     Dates: start: 20161125
  19. NEOMEDICOUGH [Concomitant]
     Indication: COUGH
     Dosage: UNK UNK, UNKNOWN FREQ.
     Route: 048
     Dates: start: 20170804, end: 20170810
  20. HEBRON?F [Concomitant]
     Indication: COUGH
     Dosage: UNK UNK, UNKNOWN FREQ.
     Route: 048
     Dates: start: 20170804, end: 20170810
  21. CORTISOLU [Concomitant]
     Active Substance: HYDROCORTISONE SODIUM SUCCINATE
     Dosage: UNK UNK, UNKNOWN FREQ.
     Route: 042
     Dates: start: 20170804, end: 20170804
  22. CORTISOLU [Concomitant]
     Active Substance: HYDROCORTISONE SODIUM SUCCINATE
     Dosage: UNK UNK, UNKNOWN FREQ.
     Route: 042
     Dates: start: 20170818, end: 20170818
  23. CORTISOLU [Concomitant]
     Active Substance: HYDROCORTISONE SODIUM SUCCINATE
     Dosage: UNK UNK, UNKNOWN FREQ.
     Route: 042
     Dates: start: 20170822, end: 20170822

REACTIONS (2)
  - Pneumonia [Fatal]
  - Febrile neutropenia [Recovered/Resolved]

NARRATIVE: CASE EVENT DATE: 20170712
